FAERS Safety Report 6530823-4 (Version None)
Quarter: 2010Q1

REPORT INFORMATION
  Report Type: 
  Country: None (occurrence: None)
  Receive Date: 20100108
  Receipt Date: 20091104
  Transmission Date: 20100710
  Serious: No
  Sender: FDA-Public Use
  Company Number: A0774605A

PATIENT
  Age: 71 Year
  Sex: Male

DRUGS (18)
  1. LOVAZA [Suspect]
     Indication: CORONARY ARTERY DISEASE
     Dosage: 2CAP TWICE PER DAY
     Route: 048
  2. NORVASC [Concomitant]
  3. PRINIVIL [Concomitant]
  4. LIPITOR [Concomitant]
  5. ATIVAN [Concomitant]
  6. WELCHOL [Concomitant]
  7. NIASPAN [Concomitant]
  8. IMDUR [Concomitant]
  9. COUMADIN [Concomitant]
  10. AMBIEN [Concomitant]
  11. ZETIA [Concomitant]
  12. PLAVIX [Concomitant]
  13. DETROL [Concomitant]
  14. NEXIUM [Concomitant]
  15. SPIRONOLACTONE [Concomitant]
  16. VITAMIN D [Concomitant]
  17. MAGNESIUM [Concomitant]
  18. LUPRON [Concomitant]

REACTIONS (2)
  - DYSGEUSIA [None]
  - PRODUCT QUALITY ISSUE [None]
